FAERS Safety Report 24942063 (Version 1)
Quarter: 2025Q1

REPORT INFORMATION
  Report Type: Spontaneous
  Country: US (occurrence: US)
  Receive Date: 20250207
  Receipt Date: 20250207
  Transmission Date: 20250409
  Serious: Yes (Life-Threatening, Hospitalization, Other)
  Sender: IPSEN BIOPHARMACEUTICALS, INC.
  Company Number: US-IPSEN Group, Research and Development-2025-02769

PATIENT
  Age: 27 Year
  Sex: Male

DRUGS (5)
  1. LANREOTIDE ACETATE [Suspect]
     Active Substance: LANREOTIDE ACETATE
     Indication: Neuroendocrine tumour
     Route: 058
  2. LANREOTIDE ACETATE [Suspect]
     Active Substance: LANREOTIDE ACETATE
     Indication: Vipoma
  3. CAPECITABINE [Concomitant]
     Active Substance: CAPECITABINE
  4. TEMOZOLOMIDE [Concomitant]
     Active Substance: TEMOZOLOMIDE
  5. OCTREOTIDE [Concomitant]
     Active Substance: OCTREOTIDE

REACTIONS (8)
  - Electrolyte imbalance [Recovered/Resolved]
  - Dehydration [Unknown]
  - Diarrhoea [Recovering/Resolving]
  - Hypotension [Unknown]
  - Hypophagia [Unknown]
  - Metastases to bone [Unknown]
  - Pain [Recovered/Resolved]
  - Drug ineffective [Unknown]
